FAERS Safety Report 13305815 (Version 1)
Quarter: 2017Q1

REPORT INFORMATION
  Report Type: Spontaneous
  Country: CA (occurrence: CA)
  Receive Date: 20170308
  Receipt Date: 20170308
  Transmission Date: 20170428
  Serious: Yes (Life-Threatening, Hospitalization)
  Sender: FDA-Public Use
  Company Number: CA-BRACCO-001299

PATIENT
  Age: 61 Year
  Sex: Male
  Weight: 89 kg

DRUGS (12)
  1. FUROSEMIDE. [Concomitant]
     Active Substance: FUROSEMIDE
  2. METOPROLOL. [Concomitant]
     Active Substance: METOPROLOL
  3. BISACODYL. [Concomitant]
     Active Substance: BISACODYL
     Indication: COLONOSCOPY
  4. HYDRALAZINE [Concomitant]
     Active Substance: HYDRALAZINE HYDROCHLORIDE
  5. RAPAMUNE [Concomitant]
     Active Substance: SIROLIMUS
  6. MYFORTIC [Concomitant]
     Active Substance: MYCOPHENOLATE SODIUM
  7. BARIUM SULPHATE [Suspect]
     Active Substance: BARIUM SULFATE
     Indication: COLONOSCOPY
     Dosage: 1 DOSAGE FORM
     Route: 048
  8. ACETYLSALICYLIC ACID [Concomitant]
     Active Substance: ASPIRIN
     Dosage: DELAYED RELEASE
  9. NOVORAPID [Concomitant]
     Active Substance: INSULIN ASPART
  10. GEMFIBROZIL. [Concomitant]
     Active Substance: GEMFIBROZIL
  11. COVERSYL [Suspect]
     Active Substance: PERINDOPRIL
     Indication: PRODUCT USED FOR UNKNOWN INDICATION
     Route: 048
  12. NPH INSULIN [Concomitant]
     Active Substance: INSULIN BEEF

REACTIONS (3)
  - Angioedema [Recovering/Resolving]
  - Drug interaction [Recovering/Resolving]
  - Swollen tongue [Recovering/Resolving]
